FAERS Safety Report 5772285-0 (Version None)
Quarter: 2008Q2

REPORT INFORMATION
  Report Type: 
  Country: None (occurrence: None)
  Receive Date: 20080613
  Receipt Date: 20080604
  Transmission Date: 20081010
  Serious: Yes (Other)
  Sender: FDA-Public Use
  Company Number: PHHY2008BR09506

PATIENT
  Age: 77 Year
  Sex: Male
  Weight: 88 kg

DRUGS (7)
  1. FORASEQ [Suspect]
     Indication: EMPHYSEMA
     Dosage: 12/400 MCG
     Dates: start: 20030101
  2. FORASEQ [Suspect]
     Dosage: UNK
     Dates: start: 20071201
  3. OMEPRAZOLE [Concomitant]
     Indication: STOMACH DISCOMFORT
     Dosage: 20 MG
     Route: 048
     Dates: start: 20010101
  4. DOXAZOSIN MESYLATE [Concomitant]
     Dosage: 4 MG
     Route: 048
     Dates: start: 19930101
  5. COMBIVENT [Concomitant]
     Indication: EMPHYSEMA
     Dosage: UNK
     Dates: start: 20060101
  6. PRELONE [Concomitant]
     Indication: EMPHYSEMA
     Dosage: 20 MG
     Route: 048
     Dates: start: 20010101
  7. BEROTEC [Concomitant]
     Indication: EMPHYSEMA

REACTIONS (8)
  - CATARACT [None]
  - COUGH [None]
  - DYSPNOEA [None]
  - HEART RATE INCREASED [None]
  - SCAR [None]
  - SKIN HAEMORRHAGE [None]
  - UMBILICAL HERNIA REPAIR [None]
  - VISUAL ACUITY REDUCED [None]
